FAERS Safety Report 25303178 (Version 2)
Quarter: 2025Q2

REPORT INFORMATION
  Report Type: Report from Study
  Country: US (occurrence: US)
  Receive Date: 20250512
  Receipt Date: 20250526
  Transmission Date: 20250716
  Serious: Yes (Other)
  Sender: MALLINCKRODT
  Company Number: US-MALLINCKRODT-MNK202502753

PATIENT
  Sex: Male

DRUGS (1)
  1. CORTICOTROPIN [Suspect]
     Active Substance: CORTICOTROPIN
     Indication: Product used for unknown indication

REACTIONS (11)
  - Diabetes mellitus [Unknown]
  - Gastrointestinal disorder [Unknown]
  - Back pain [Unknown]
  - Prostatic specific antigen increased [Unknown]
  - Ill-defined disorder [Unknown]
  - Sleep deficit [Unknown]
  - Joint swelling [Unknown]
  - Peripheral swelling [Not Recovered/Not Resolved]
  - Injection site pruritus [Recovered/Resolved]
  - Rash [Recovering/Resolving]
  - Injection site irritation [Recovering/Resolving]
